FAERS Safety Report 8625412-1 (Version None)
Quarter: 2012Q3

REPORT INFORMATION
  Report Type: 
  Country: None (occurrence: None)
  Receive Date: 20120827
  Receipt Date: 20120814
  Transmission Date: 20120928
  Serious: Yes (Other)
  Sender: FDA-Public Use
  Company Number: CHPA2012US018184

PATIENT
  Age: 62 Year
  Sex: Female

DRUGS (2)
  1. FOSAMAX [Concomitant]
     Indication: ARTHRITIS
     Dosage: UNK
     Dates: start: 20070101
  2. MYOFLEX ANALGESIC CREME [Suspect]
     Indication: BACK PAIN
     Dosage: UNK, UNK
     Route: 061
     Dates: start: 20080101

REACTIONS (3)
  - TOOTH LOSS [None]
  - THERAPEUTIC RESPONSE UNEXPECTED [None]
  - OFF LABEL USE [None]
